FAERS Safety Report 6120772-8 (Version None)
Quarter: 2009Q1

REPORT INFORMATION
  Report Type: 
  Country: None (occurrence: None)
  Receive Date: 20090313
  Receipt Date: 20090202
  Transmission Date: 20090719
  Serious: Yes (Hospitalization, Other)
  Sender: FDA-Public Use
  Company Number: 2008-0019571

PATIENT
  Age: 48 Year
  Sex: Male

DRUGS (6)
  1. ATRIPLA [Suspect]
     Indication: HIV INFECTION
     Dosage: 300 MG, 1 IN 1 D, ORAL
     Route: 048
     Dates: start: 20071015, end: 20081208
  2. ACYCLOVIR [Suspect]
     Indication: HERPES SIMPLEX
  3. MARINOL [Suspect]
     Indication: NAUSEA
  4. PROTONIX [Suspect]
     Indication: GASTROOESOPHAGEAL REFLUX DISEASE
  5. ATENOLOL [Concomitant]
  6. VASOTEC [Concomitant]

REACTIONS (2)
  - NEPHROPATHY TOXIC [None]
  - RENAL TUBULAR NECROSIS [None]
